FAERS Safety Report 5455431-8 (Version None)
Quarter: 2007Q3

REPORT INFORMATION
  Report Type: 
  Country: None (occurrence: None)
  Receive Date: 20070918
  Receipt Date: 20061102
  Transmission Date: 20080115
  Serious: No
  Sender: FDA-Public Use
  Company Number: US-ASTRAZENECA-2006UW21332

PATIENT
  Age: 50 Year
  Sex: Male

DRUGS (2)
  1. SEROQUEL [Suspect]
     Indication: SLEEP DISORDER
     Dosage: 200MG IN THE MORNING AND 400MG IN THE EVENING
     Route: 048
  2. SEROQUEL [Suspect]
     Indication: PAIN
     Dosage: 200MG IN THE MORNING AND 400MG IN THE EVENING
     Route: 048

REACTIONS (1)
  - CHOKING [None]
